FAERS Safety Report 4416890-2 (Version None)
Quarter: 2004Q2

REPORT INFORMATION
  Report Type: 
  Country: None (occurrence: None)
  Receive Date: 20040628
  Receipt Date: 20040527
  Transmission Date: 20050107
  Serious: No
  Sender: FDA-Public Use
  Company Number: USA-2004-0015367

PATIENT
  Age: 57 Year
  Sex: Male

DRUGS (1)
  1. SPECTRACEF [Suspect]
     Indication: RESPIRATORY TRACT INFECTION
     Dosage: 400 MG, BID

REACTIONS (2)
  - FACIAL PAIN [None]
  - LYMPH NODE PAIN [None]
